FAERS Safety Report 8569391-4 (Version None)
Quarter: 2012Q3

REPORT INFORMATION
  Report Type: 
  Country: None (occurrence: None)
  Receive Date: 20120803
  Receipt Date: 20120502
  Transmission Date: 20120928
  Serious: No
  Sender: FDA-Public Use
  Company Number: US-ABBOTT-12P-163-0931636-00

PATIENT
  Sex: Female
  Weight: 88.53 kg

DRUGS (10)
  1. NIASPAN [Suspect]
  2. BYSTOLIC [Concomitant]
     Indication: HYPERTENSION
  3. SYNTHROID [Concomitant]
     Indication: PRODUCT USED FOR UNKNOWN INDICATION
  4. PROTONIX [Suspect]
     Indication: PRODUCT USED FOR UNKNOWN INDICATION
  5. SPIRONOLACTONE [Concomitant]
     Indication: PRODUCT USED FOR UNKNOWN INDICATION
  6. BENICAR HCT [Concomitant]
     Indication: HYPERTENSION
     Dosage: 40/25 ONCE DAILY
  7. ASPIRIN [Concomitant]
     Indication: PRODUCT USED FOR UNKNOWN INDICATION
  8. NORVASC [Concomitant]
     Indication: HYPERTENSION
  9. NIASPAN [Suspect]
     Indication: PRODUCT USED FOR UNKNOWN INDICATION
  10. EFFIENT [Concomitant]
     Indication: STENT PLACEMENT

REACTIONS (1)
  - MEDICATION RESIDUE [None]
